FAERS Safety Report 9660342 (Version 1)
Quarter: 2013Q4

REPORT INFORMATION
  Report Type: Spontaneous
  Country: US (occurrence: US)
  Receive Date: 20131031
  Receipt Date: 20131031
  Transmission Date: 20140711
  Serious: Yes (Other)
  Sender: FDA-Public Use
  Company Number: US-NAPPMUNDI-USA-2011-0073145

PATIENT
  Age: 34 Year
  Sex: Male
  Weight: 72 kg

DRUGS (4)
  1. OXYCONTIN TABLETS [Suspect]
     Indication: PRODUCT USED FOR UNKNOWN INDICATION
     Dosage: 60 MG, BID
     Dates: start: 20040529, end: 20101001
  2. OXYCONTIN TABLETS [Suspect]
     Dosage: 80 MG, BID
  3. PERCOCET                           /00867901/ [Concomitant]
     Indication: PRODUCT USED FOR UNKNOWN INDICATION
     Dosage: 10 MG, UNK
  4. VALIUM                             /00017001/ [Concomitant]
     Indication: PRODUCT USED FOR UNKNOWN INDICATION
     Dosage: 10 MG, UNK

REACTIONS (13)
  - Drug dependence [Unknown]
  - Pain [Unknown]
  - Dizziness [Unknown]
  - Migraine [Unknown]
  - Abdominal discomfort [Unknown]
  - Dry mouth [Unknown]
  - Irritability [Unknown]
  - Libido decreased [Unknown]
  - Hyperhidrosis [Unknown]
  - Apathy [Unknown]
  - Depressed mood [Unknown]
  - Malaise [Unknown]
  - Drug withdrawal syndrome [Unknown]
